FAERS Safety Report 13925971 (Version 1)
Quarter: 2017Q3

REPORT INFORMATION
  Report Type: Spontaneous
  Country: US (occurrence: US)
  Receive Date: 20170831
  Receipt Date: 20170831
  Transmission Date: 20171127
  Serious: No
  Sender: FDA-Public Use
  Company Number: US-SUNOVION-2016SUN003592

PATIENT

DRUGS (1)
  1. LATUDA [Suspect]
     Active Substance: LURASIDONE HYDROCHLORIDE
     Dosage: UNK
     Route: 048

REACTIONS (8)
  - Psychomotor hyperactivity [Unknown]
  - Sudden onset of sleep [Unknown]
  - Feeling abnormal [Unknown]
  - Sedation [Unknown]
  - Restlessness [Unknown]
  - Anxiety [Unknown]
  - Insomnia [Recovering/Resolving]
  - Agitation [Unknown]
